FAERS Safety Report 5671017-4 (Version None)
Quarter: 2008Q1

REPORT INFORMATION
  Report Type: 
  Country: None (occurrence: None)
  Receive Date: 20080318
  Receipt Date: 20080310
  Transmission Date: 20080703
  Serious: Yes (Hospitalization)
  Sender: FDA-Public Use
  Company Number: US-ASTRAZENECA-2008UW04826

PATIENT
  Age: 71 Year
  Sex: Female

DRUGS (10)
  1. SYMBICORT [Suspect]
     Indication: ASTHMA
     Route: 055
     Dates: start: 20071201
  2. SINGULAIR [Concomitant]
  3. PLAVIX [Concomitant]
  4. DIGOXIN [Concomitant]
  5. ASPIRIN [Concomitant]
  6. ZOCOR [Concomitant]
  7. DILTIAZEM [Concomitant]
  8. LISINOPRIL [Concomitant]
  9. NITROGLYCERIN [Concomitant]
  10. PROTONIX [Concomitant]

REACTIONS (3)
  - ASTHMA [None]
  - CORONARY ARTERY OCCLUSION [None]
  - TACHYCARDIA [None]
